FAERS Safety Report 7659185-6 (Version None)
Quarter: 2011Q3

REPORT INFORMATION
  Report Type: 
  Country: None (occurrence: None)
  Receive Date: 20110805
  Receipt Date: 20110728
  Transmission Date: 20111222
  Serious: Yes (Hospitalization)
  Sender: FDA-Public Use
  Company Number: AT-GLAXOSMITHKLINE-B0737467A

PATIENT
  Sex: Male

DRUGS (7)
  1. RITUXIMAB [Suspect]
     Indication: CHRONIC LYMPHOCYTIC LEUKAEMIA
     Dosage: 995MG MONTHLY
     Route: 042
     Dates: start: 20110224
  2. TRAZODONE HCL [Concomitant]
     Dates: start: 20110421
  3. METOPROLOL TARTRATE [Concomitant]
     Dates: start: 20110420, end: 20110524
  4. CHLORAMBUCIL [Suspect]
     Indication: CHRONIC LYMPHOCYTIC LEUKAEMIA
     Dosage: 44MG EVERY TWO WEEKS
     Route: 048
     Dates: start: 20110224
  5. HYDROCHLOROTHIAZIDE + RAMIPRIL [Concomitant]
  6. TAMSULOSIN HCL [Concomitant]
  7. TEBOFORTAN [Concomitant]
     Dates: start: 20110421

REACTIONS (3)
  - HYPERTONIA [None]
  - UPPER RESPIRATORY TRACT INFECTION [None]
  - PLEURAL EFFUSION [None]
